FAERS Safety Report 4561272-6 (Version None)
Quarter: 2005Q1

REPORT INFORMATION
  Report Type: 
  Country: None (occurrence: None)
  Receive Date: 20050126
  Receipt Date: 20050114
  Transmission Date: 20050727
  Serious: Yes (Hospitalization, Other)
  Sender: FDA-Public Use
  Company Number: DE-JNJFOC-20050103414

PATIENT
  Sex: Female

DRUGS (2)
  1. RISPERDAL CONSTA [Suspect]
     Dosage: TREATMENT STARTED ABOUT A YEAR AGO.
     Route: 030
  2. MELPERON [Concomitant]
     Dosage: PRN
     Route: 049

REACTIONS (4)
  - ALVEOLITIS ALLERGIC [None]
  - COUGH [None]
  - LOWER RESPIRATORY TRACT INFLAMMATION [None]
  - PULMONARY TUBERCULOSIS [None]
